FAERS Safety Report 9681954 (Version 1)
Quarter: 2013Q4

REPORT INFORMATION
  Report Type: Spontaneous
  Country: US (occurrence: US)
  Receive Date: 20131111
  Receipt Date: 20131111
  Transmission Date: 20140711
  Serious: Yes (Hospitalization, Other)
  Sender: FDA-Public Use
  Company Number: US-PFIZER INC-2013320745

PATIENT
  Age: 48 Year
  Sex: Male
  Weight: 68.03 kg

DRUGS (2)
  1. LYRICA [Suspect]
     Indication: HYPOAESTHESIA
     Dosage: 225 MG, 2X/DAY
     Route: 048
     Dates: start: 2010
  2. METFORMIN [Concomitant]
     Indication: DIABETES MELLITUS
     Dosage: UNK

REACTIONS (7)
  - Cerebrovascular accident [Unknown]
  - Respiratory distress [Unknown]
  - Pneumonia [Unknown]
  - Hepatic failure [Unknown]
  - Renal failure [Unknown]
  - Nephrolithiasis [Unknown]
  - Jaundice [Unknown]
